FAERS Safety Report 7383318-2 (Version None)
Quarter: 2011Q1

REPORT INFORMATION
  Report Type: 
  Country: None (occurrence: None)
  Receive Date: 20110325
  Receipt Date: 20110325
  Transmission Date: 20110831
  Serious: Yes (Death, Hospitalization)
  Sender: FDA-Public Use
  Company Number: None

PATIENT
  Age: 73 Year
  Sex: Male
  Weight: 85.8 kg

DRUGS (5)
  1. OXYCODONE [Concomitant]
  2. COUMADIN [Suspect]
     Indication: ATRIAL FIBRILLATION
     Dosage: 4MG DAILY PO CHRONIC
     Route: 048
  3. CELEXA [Concomitant]
  4. DIGIXON [Concomitant]
  5. PRAVACHOL [Concomitant]

REACTIONS (4)
  - HYPERTENSION [None]
  - UNRESPONSIVE TO STIMULI [None]
  - BASAL GANGLIA HAEMORRHAGE [None]
  - CONDITION AGGRAVATED [None]
